FAERS Safety Report 6084108-3 (Version None)
Quarter: 2009Q1

REPORT INFORMATION
  Report Type: 
  Country: None (occurrence: None)
  Receive Date: 20090219
  Receipt Date: 20090129
  Transmission Date: 20090719
  Serious: Yes (Life-Threatening, Hospitalization)
  Sender: FDA-Public Use
  Company Number: CZ-MERCK-0901CZE00002

PATIENT
  Age: 39 Year
  Sex: Female

DRUGS (2)
  1. ZOCOR [Suspect]
     Indication: INTENTIONAL DRUG MISUSE
     Route: 048
     Dates: start: 20070301
  2. ZOCOR [Suspect]
     Route: 048
     Dates: end: 20070701

REACTIONS (7)
  - ACCIDENTAL OVERDOSE [None]
  - COMPARTMENT SYNDROME [None]
  - DISSEMINATED INTRAVASCULAR COAGULATION [None]
  - HEPATIC FAILURE [None]
  - MUSCLE NECROSIS [None]
  - OFF LABEL USE [None]
  - RENAL FAILURE ACUTE [None]
